FAERS Safety Report 5830859-2 (Version None)
Quarter: 2008Q3

REPORT INFORMATION
  Report Type: 
  Country: None (occurrence: None)
  Receive Date: 20080801
  Receipt Date: 20080104
  Transmission Date: 20090109
  Serious: No
  Sender: FDA-Public Use
  Company Number: US-BRISTOL-MYERS SQUIBB COMPANY-14031157

PATIENT
  Age: 61 Year
  Sex: Female

DRUGS (7)
  1. COUMADIN [Suspect]
     Indication: CEREBROVASCULAR ACCIDENT
     Route: 048
     Dates: start: 20050101
  2. ASPIRIN [Concomitant]
  3. CARDIZEM [Concomitant]
  4. SYNTHROID [Concomitant]
  5. CELEXA [Concomitant]
  6. LIPITOR [Concomitant]
  7. ZESTRIL [Concomitant]

REACTIONS (1)
  - HEADACHE [None]
